FAERS Safety Report 16858033 (Version 2)
Quarter: 2019Q4

REPORT INFORMATION
  Report Type: Spontaneous
  Country: US (occurrence: US)
  Receive Date: 20190926
  Receipt Date: 20191104
  Transmission Date: 20200122
  Serious: Yes (Other)
  Sender: FDA-Public Use
  Company Number: US-TEVA-2019-US-1112542

PATIENT

DRUGS (4)
  1. FLEXERIL [Suspect]
     Active Substance: CYCLOBENZAPRINE HYDROCHLORIDE
     Dosage: 10 MG
     Route: 048
  2. PROVIGIL [Suspect]
     Active Substance: MODAFINIL
     Route: 048
  3. ABILIFY [Suspect]
     Active Substance: ARIPIPRAZOLE
     Dosage: 1 MG/ML
     Route: 048
  4. DEMEROL [Suspect]
     Active Substance: MEPERIDINE HYDROCHLORIDE
     Dosage: 100 MG
     Route: 048

REACTIONS (8)
  - Parkinsonism [Unknown]
  - Mood swings [Unknown]
  - Fibromyalgia [Unknown]
  - Drug hypersensitivity [Unknown]
  - Adverse drug reaction [Unknown]
  - Hallucination [Unknown]
  - Rash [Unknown]
  - Urticaria [Unknown]

NARRATIVE: CASE EVENT DATE: 20160419
